FAERS Safety Report 9832984 (Version 2)
Quarter: 2014Q1

REPORT INFORMATION
  Report Type: Spontaneous
  Country: US (occurrence: US)
  Receive Date: 20140121
  Receipt Date: 20140314
  Transmission Date: 20141002
  Serious: Yes (Hospitalization)
  Sender: FDA-Public Use
  Company Number: US-B.I. PHARMACEUTICALS,INC./RIDGEFIELD-2014-BI-02011BP

PATIENT
  Age: 78 Year
  Sex: Male
  Weight: 68 kg

DRUGS (17)
  1. PRADAXA [Suspect]
     Indication: ATRIAL FIBRILLATION
     Dosage: 300 MG
     Route: 048
     Dates: start: 201209, end: 201302
  2. PRADAXA [Suspect]
     Dosage: 300 MG
     Route: 048
     Dates: start: 201311
  3. FUROSEMIDE [Concomitant]
     Indication: FLUID RETENTION
     Dosage: 20 MG
     Route: 048
  4. MELOXICAM [Concomitant]
     Indication: CONSTIPATION
     Route: 048
  5. COLACE [Concomitant]
     Indication: FAECES HARD
     Dosage: 100 MG
     Route: 048
  6. FAMOTIDINE [Concomitant]
     Indication: GASTROOESOPHAGEAL REFLUX DISEASE
     Dosage: 20 MG
     Route: 048
  7. AVODART [Concomitant]
     Indication: BENIGN PROSTATIC HYPERPLASIA
     Dosage: 0.5 MG
     Route: 048
  8. FOLIC ACID [Concomitant]
     Dosage: 800 MG
     Route: 048
  9. METAMUCIL [Concomitant]
     Indication: CONSTIPATION
     Route: 048
  10. AMLODIPINE [Concomitant]
     Indication: HYPERTENSION
     Dosage: 2.5 MG
     Route: 048
  11. METOPROLOL [Concomitant]
     Indication: HYPERTENSION
     Dosage: 50 MG
     Route: 048
  12. TAMSULOSIN [Concomitant]
     Indication: BENIGN PROSTATIC HYPERPLASIA
     Dosage: 0.8 MG
     Route: 048
  13. AMIODARONE [Concomitant]
     Indication: ATRIAL FIBRILLATION
     Dosage: 100 MG
     Route: 048
  14. SEROQUEL [Concomitant]
     Indication: HALLUCINATION
     Dosage: 50 MG
     Route: 048
  15. SEROQUEL [Concomitant]
     Indication: SOMNAMBULISM
  16. EXCELON PATCH [Concomitant]
     Indication: PARKINSON^S DISEASE
     Dosage: 4.6 MG
     Route: 061
  17. HYOSCYAMINE [Concomitant]
     Indication: BENIGN PROSTATIC HYPERPLASIA
     Dosage: 0.125 MG
     Route: 048

REACTIONS (3)
  - Rectal haemorrhage [Recovered/Resolved]
  - Application site pain [Not Recovered/Not Resolved]
  - Confusional state [Not Recovered/Not Resolved]
